FAERS Safety Report 7120304-1 (Version None)
Quarter: 2010Q4

REPORT INFORMATION
  Report Type: 
  Country: None (occurrence: None)
  Receive Date: 20101123
  Receipt Date: 20101112
  Transmission Date: 20110411
  Serious: Yes (Hospitalization)
  Sender: FDA-Public Use
  Company Number: CH-BRISTOL-MYERS SQUIBB COMPANY-15398886

PATIENT
  Age: 49 Year
  Sex: Female

DRUGS (2)
  1. GLUCOPHAGE [Suspect]
     Indication: TYPE 2 DIABETES MELLITUS
     Route: 048
  2. NOVOMIX [Suspect]
     Indication: TYPE 2 DIABETES MELLITUS
     Dosage: NOVOMIX  30 DOSE REDUCED TO 20 IU 2009-11JAN10(1 YEAR) 12JAN-UNK
     Route: 058
     Dates: start: 20090101

REACTIONS (3)
  - HYPOGLYCAEMIA [None]
  - PALPITATIONS [None]
  - SOMNOLENCE [None]
